FAERS Safety Report 5283981-6 (Version None)
Quarter: 2007Q1

REPORT INFORMATION
  Report Type: 
  Country: None (occurrence: None)
  Receive Date: 20070327
  Receipt Date: 20070314
  Transmission Date: 20070707
  Serious: Yes (Other)
  Sender: FDA-Public Use
  Company Number: US019611

PATIENT
  Age: 39 Year
  Sex: Female
  Weight: 56.8 kg

DRUGS (2)
  1. ACTIQ [Suspect]
     Indication: NECK PAIN
     Dates: start: 20040101, end: 20061101
  2. BOTOX [Concomitant]

REACTIONS (2)
  - DRUG ABUSER [None]
  - DRUG WITHDRAWAL SYNDROME [None]
